FAERS Safety Report 15695380 (Version 1)
Quarter: 2018Q4

REPORT INFORMATION
  Report Type: Report from Study
  Country: US (occurrence: US)
  Receive Date: 20181206
  Receipt Date: 20181206
  Transmission Date: 20190205
  Serious: Yes (Hospitalization, Other)
  Sender: FDA-Public Use
  Company Number: US-AEGERION PHARMACEUTICAL, INC-AEGR004059

PATIENT
  Age: 50 Year
  Sex: Female
  Weight: 57.6 kg

DRUGS (2)
  1. JUXTAPID [Suspect]
     Active Substance: LOMITAPIDE MESYLATE
     Indication: TYPE IIA HYPERLIPIDAEMIA
     Dosage: 5 MG, UNK
     Route: 048
     Dates: start: 201304
  2. JUXTAPID [Suspect]
     Active Substance: LOMITAPIDE MESYLATE
     Dosage: 20 MG, QD (AT BEDTIME)
     Route: 048

REACTIONS (4)
  - Headache [Not Recovered/Not Resolved]
  - Peripheral vascular disorder [Unknown]
  - Weight decreased [Unknown]
  - Aneurysm [Recovering/Resolving]

NARRATIVE: CASE EVENT DATE: 2018
